FAERS Safety Report 17561695 (Version 1)
Quarter: 2020Q1

REPORT INFORMATION
  Report Type: Spontaneous
  Country: US (occurrence: US)
  Receive Date: 20200319
  Receipt Date: 20200319
  Transmission Date: 20200409
  Serious: No
  Sender: FDA-Public Use
  Company Number: None

PATIENT
  Age: 76 Year
  Sex: Male
  Weight: 106.2 kg

DRUGS (5)
  1. MULTIVITAMIN [Concomitant]
     Active Substance: VITAMINS
  2. SIMVASTATIN. [Concomitant]
     Active Substance: SIMVASTATIN
  3. INLYTA [Suspect]
     Active Substance: AXITINIB
     Route: 048
     Dates: start: 20191112, end: 20200319
  4. ALBUTEROL. [Concomitant]
     Active Substance: ALBUTEROL
  5. ELIQUIS [Concomitant]
     Active Substance: APIXABAN

REACTIONS (1)
  - Diarrhoea [None]

NARRATIVE: CASE EVENT DATE: 20200319
